FAERS Safety Report 16277888 (Version 1)
Quarter: 2019Q2

REPORT INFORMATION
  Report Type: Spontaneous
  Country: US (occurrence: US)
  Receive Date: 20190506
  Receipt Date: 20190506
  Transmission Date: 20190711
  Serious: Yes (Other)
  Sender: FDA-Public Use
  Company Number: PHHY2019US101993

PATIENT
  Age: 62 Year
  Sex: Female

DRUGS (4)
  1. METOPROLOL. [Suspect]
     Active Substance: METOPROLOL
     Indication: HYPERTENSION
     Dosage: UNK
     Route: 065
  2. DILTIAZEM. [Concomitant]
     Active Substance: DILTIAZEM
     Indication: HYPERTENSION
     Dosage: UNK
     Route: 065
  3. METOPROLOL. [Suspect]
     Active Substance: METOPROLOL
     Dosage: UNK (DOSE INCREASED)
     Route: 065
  4. DILTIAZEM. [Concomitant]
     Active Substance: DILTIAZEM
     Dosage: UNK (DOSE INCREASED)
     Route: 065

REACTIONS (7)
  - Dizziness [Unknown]
  - Angina pectoris [Unknown]
  - Sinus tachycardia [Unknown]
  - Dyspnoea [Unknown]
  - Hypotension [Unknown]
  - Hypertrophic cardiomyopathy [Unknown]
  - Tachycardia [Recovering/Resolving]
